FAERS Safety Report 22535664 (Version 7)
Quarter: 2024Q2

REPORT INFORMATION
  Report Type: Spontaneous
  Country: US (occurrence: US)
  Receive Date: 20230608
  Receipt Date: 20240523
  Transmission Date: 20240716
  Serious: No
  Sender: FDA-Public Use
  Company Number: US-SA-SAC20230605001426

PATIENT
  Age: 55 Year
  Sex: Female

DRUGS (44)
  1. DUPIXENT [Suspect]
     Active Substance: DUPILUMAB
     Indication: Dermatitis atopic
     Dosage: 300 MG, QOW
     Route: 058
     Dates: start: 20230330
  2. GARLIC [Suspect]
     Active Substance: GARLIC
     Dosage: UNK
  3. ATORVASTATIN [Concomitant]
     Active Substance: ATORVASTATIN
     Dosage: UNK
  4. ATORVASTATIN [Concomitant]
     Active Substance: ATORVASTATIN
  5. CETIRIZINE [Concomitant]
     Active Substance: CETIRIZINE HYDROCHLORIDE
  6. CETIRIZINE [Concomitant]
     Active Substance: CETIRIZINE HYDROCHLORIDE
  7. CITALOPRAM [Concomitant]
     Active Substance: CITALOPRAM\CITALOPRAM HYDROBROMIDE
     Dosage: UNK
  8. FISH OIL [Concomitant]
     Active Substance: FISH OIL
     Dosage: UNK
  9. FISH OIL [Concomitant]
     Active Substance: FISH OIL
  10. JARDIANCE [Concomitant]
     Active Substance: EMPAGLIFLOZIN
     Dosage: UNK
  11. JARDIANCE [Concomitant]
     Active Substance: EMPAGLIFLOZIN
  12. LOSARTAN POTASSIUM [Concomitant]
     Active Substance: LOSARTAN POTASSIUM
     Dosage: UNK
  13. LOSARTAN POTASSIUM [Concomitant]
     Active Substance: LOSARTAN POTASSIUM
  14. NURTEC ODT [Concomitant]
     Active Substance: RIMEGEPANT SULFATE
     Dosage: UNK
  15. NURTEC ODT [Concomitant]
     Active Substance: RIMEGEPANT SULFATE
  16. OLANZAPINE [Concomitant]
     Active Substance: OLANZAPINE
     Dosage: UNK
  17. TRULICITY [Concomitant]
     Active Substance: DULAGLUTIDE
  18. TRULICITY [Concomitant]
     Active Substance: DULAGLUTIDE
  19. VERAPAMIL [Concomitant]
     Active Substance: VERAPAMIL HYDROCHLORIDE
  20. VITAMIN B1 [Concomitant]
     Active Substance: THIAMINE HYDROCHLORIDE
  21. VITAMIN D3 [Concomitant]
     Active Substance: CHOLECALCIFEROL
  22. ZYRTEC [Concomitant]
     Active Substance: CETIRIZINE HYDROCHLORIDE
     Dosage: UNK
  23. VITAMIN D3 [Concomitant]
     Active Substance: CHOLECALCIFEROL
  24. CHILDREN VITAMIN [Concomitant]
  25. VITAMINS [Concomitant]
     Active Substance: VITAMINS
  26. MAGNESIUM OXIDE [Concomitant]
     Active Substance: MAGNESIUM OXIDE
  27. MAGNESIUM [Concomitant]
     Active Substance: MAGNESIUM
  28. MAGNESIUM [Concomitant]
     Active Substance: MAGNESIUM
  29. LIPITOR [Concomitant]
     Active Substance: ATORVASTATIN CALCIUM
  30. TOPIRAMATE [Concomitant]
     Active Substance: TOPIRAMATE
  31. HYDROCHLOROTHIAZIDE [Concomitant]
     Active Substance: HYDROCHLOROTHIAZIDE
     Dosage: UNK
  32. LOSARTAN POTASSIUM [Concomitant]
     Active Substance: LOSARTAN POTASSIUM
     Dosage: UNK
  33. TOPIRAMATE [Concomitant]
     Active Substance: TOPIRAMATE
     Dosage: UNK
  34. TRULICITY [Concomitant]
     Active Substance: DULAGLUTIDE
     Dosage: UNK
  35. VERAPAMIL [Concomitant]
     Active Substance: VERAPAMIL HYDROCHLORIDE
     Dosage: UNK
  36. LOSARTAN [Concomitant]
     Active Substance: LOSARTAN
  37. HYDROCHLOROTHIAZIDE [Concomitant]
     Active Substance: HYDROCHLOROTHIAZIDE
     Dosage: UNK
  38. CYANOCOBALAMIN [Concomitant]
     Active Substance: CYANOCOBALAMIN
  39. RYBELSUS [Concomitant]
     Active Substance: SEMAGLUTIDE
  40. VITAMINS [Concomitant]
     Active Substance: VITAMINS
  41. CLOBETASOL [Concomitant]
     Active Substance: CLOBETASOL
  42. RIZATRIPTAN [Concomitant]
     Active Substance: RIZATRIPTAN
  43. ZOLMITRIPTAN [Concomitant]
     Active Substance: ZOLMITRIPTAN
  44. JARDIANCE [Concomitant]
     Active Substance: EMPAGLIFLOZIN

REACTIONS (8)
  - Infection [Unknown]
  - Feeling hot [Unknown]
  - Dermatitis atopic [Not Recovered/Not Resolved]
  - Drug ineffective [Unknown]
  - Rash [Unknown]
  - Discomfort [Unknown]
  - Sleep disorder due to a general medical condition [Unknown]
  - Injection site reaction [Unknown]

NARRATIVE: CASE EVENT DATE: 20230101
